FAERS Safety Report 16584345 (Version 1)
Quarter: 2019Q3

REPORT INFORMATION
  Report Type: Spontaneous
  Country: US (occurrence: US)
  Receive Date: 20190716
  Receipt Date: 20190716
  Transmission Date: 20191004
  Serious: Yes (Hospitalization)
  Sender: FDA-Public Use
  Company Number: None

PATIENT
  Age: 33 Year
  Sex: Female
  Weight: 66.15 kg

DRUGS (7)
  1. ACYCLOVIR 800 MG TABLET [Concomitant]
     Active Substance: ACYCLOVIR SODIUM
  2. TEMAZEPHANE [Concomitant]
  3. GENTAMICIN SULFATE CREAM [Concomitant]
  4. STUDIO SCULPT SPF 15 BROAD SPECTRUM FOUNDATION [Suspect]
     Active Substance: OCTINOXATE\TITANIUM DIOXIDE
     Indication: THERAPEUTIC SKIN CARE TOPICAL
     Route: 061
     Dates: start: 20190708, end: 20190712
  5. DOXYCYCLINE HYCLATE. [Concomitant]
     Active Substance: DOXYCYCLINE HYCLATE
  6. ACYCLOVIR CREAM [Concomitant]
     Active Substance: ACYCLOVIR
  7. VANCOMYCIN INJECTION [Concomitant]
     Active Substance: VANCOMYCIN

REACTIONS (2)
  - Application site rash [None]
  - Acne [None]

NARRATIVE: CASE EVENT DATE: 20190708
